FAERS Safety Report 7890791-X (Version None)
Quarter: 2011Q4

REPORT INFORMATION
  Report Type: 
  Country: None (occurrence: None)
  Receive Date: 20111103
  Receipt Date: 20110725
  Transmission Date: 20120403
  Serious: Yes (Hospitalization)
  Sender: FDA-Public Use
  Company Number: US-AMGEN-USASP2011038315

PATIENT
  Age: 53 Year
  Sex: Female

DRUGS (1)
  1. ENBREL [Suspect]
     Indication: RHEUMATOID ARTHRITIS
     Dosage: 50 MG, QWK
     Dates: start: 20110215

REACTIONS (5)
  - CONTUSION [None]
  - PERIRECTAL ABSCESS [None]
  - PAIN [None]
  - INJECTION SITE PAIN [None]
  - URINARY TRACT INFECTION [None]
